FAERS Safety Report 20581578 (Version 4)
Quarter: 2022Q2

REPORT INFORMATION
  Report Type: Spontaneous
  Country: GB (occurrence: GB)
  Receive Date: 20220311
  Receipt Date: 20220429
  Transmission Date: 20220721
  Serious: Yes (Death, Hospitalization, Other)
  Sender: FDA-Public Use
  Company Number: GB-ROCHE-2238515

PATIENT
  Age: 33 Year
  Sex: Female

DRUGS (146)
  1. ANASTROZOLE [Suspect]
     Active Substance: ANASTROZOLE
     Indication: HER2 positive breast cancer
     Dosage: 1 MG, 1X/DAY
     Route: 048
     Dates: start: 20180606, end: 20190904
  2. ANASTROZOLE [Suspect]
     Active Substance: ANASTROZOLE
     Indication: Breast cancer metastatic
  3. ANASTROZOLE [Suspect]
     Active Substance: ANASTROZOLE
     Indication: Product used for unknown indication
  4. DOCETAXEL [Suspect]
     Active Substance: DOCETAXEL
     Indication: HER2 positive breast cancer
     Dosage: 130 MG, EVERY 2 WEEKS
     Route: 042
     Dates: start: 20160701, end: 20160727
  5. DOCETAXEL [Suspect]
     Active Substance: DOCETAXEL
     Indication: Breast cancer metastatic
     Dosage: 108 MG, EVERY 3 WEEKS
     Route: 042
     Dates: start: 20161111, end: 20161111
  6. DOCETAXEL [Suspect]
     Active Substance: DOCETAXEL
     Dosage: 110 MG, EVERY 3 WEEKS
     Route: 042
     Dates: start: 20160907, end: 20161021
  7. DOCETAXEL [Suspect]
     Active Substance: DOCETAXEL
     Dosage: 1 G
     Route: 042
     Dates: start: 20170616
  8. DOCETAXEL [Suspect]
     Active Substance: DOCETAXEL
     Dosage: 500 MG BID
     Route: 042
     Dates: start: 20170617
  9. DOCETAXEL [Suspect]
     Active Substance: DOCETAXEL
     Dosage: UNK
     Route: 042
     Dates: start: 20160907, end: 20161021
  10. PERTUZUMAB [Suspect]
     Active Substance: PERTUZUMAB
     Indication: HER2 positive breast cancer
     Dosage: 840 MG, EVERY 3 WEEKS
     Route: 042
     Dates: start: 20160609, end: 20160609
  11. PERTUZUMAB [Suspect]
     Active Substance: PERTUZUMAB
     Indication: Breast cancer metastatic
     Dosage: 420 MG, EVERY 3 WEEKS
     Route: 042
     Dates: start: 20160701, end: 20171228
  12. PERTUZUMAB [Suspect]
     Active Substance: PERTUZUMAB
     Dosage: 840 MG, EVERY 3 WEEKS
     Route: 042
     Dates: start: 20160609, end: 20160609
  13. TAMOXIFEN [Suspect]
     Active Substance: TAMOXIFEN
     Indication: HER2 positive breast cancer
     Dosage: 20 MG, 1X/DAY
     Route: 048
     Dates: start: 20170623, end: 20171228
  14. TAMOXIFEN [Suspect]
     Active Substance: TAMOXIFEN
     Indication: Breast cancer metastatic
     Dosage: 20 MG, 1X/DAY
     Route: 048
     Dates: start: 20180213, end: 20180605
  15. TRASTUZUMAB [Suspect]
     Active Substance: TRASTUZUMAB
     Indication: HER2 positive breast cancer
     Dosage: 441 MG, EVERY 3 WEEKS
     Route: 042
     Dates: start: 20161202, end: 20170203
  16. TRASTUZUMAB [Suspect]
     Active Substance: TRASTUZUMAB
     Indication: Breast cancer metastatic
     Dosage: 472.5 MG, EVERY 3 WEEKS
     Route: 042
     Dates: start: 20170612, end: 20171228
  17. TRASTUZUMAB [Suspect]
     Active Substance: TRASTUZUMAB
     Dosage: 567 MG, EVERY 3 WEEKS
     Route: 042
     Dates: start: 20160609, end: 20160609
  18. TRASTUZUMAB [Suspect]
     Active Substance: TRASTUZUMAB
     Dosage: 451.5 MG, EVERY 3 WEEKS
     Route: 042
     Dates: start: 20170428, end: 20170519
  19. TRASTUZUMAB [Suspect]
     Active Substance: TRASTUZUMAB
     Dosage: 430.5 MG, EVERY 3 WEEKS
     Route: 042
     Dates: start: 20170224, end: 20170407
  20. TRASTUZUMAB [Suspect]
     Active Substance: TRASTUZUMAB
     Dosage: 420 MG, EVERY 3 WEEKS
     Route: 042
     Dates: start: 20160701, end: 20160727
  21. TRASTUZUMAB [Suspect]
     Active Substance: TRASTUZUMAB
     Dosage: 441 MG, EVERY 3 WEEKS
     Route: 042
     Dates: start: 20160907, end: 20160926
  22. TRASTUZUMAB [Suspect]
     Active Substance: TRASTUZUMAB
     Dosage: 451.5 MG, EVERY 3 WEEKS
     Route: 042
     Dates: start: 20161021, end: 20161111
  23. TRASTUZUMAB [Suspect]
     Active Substance: TRASTUZUMAB
     Dosage: 451.5 MG, EVERY 3 WEEKS
     Route: 042
     Dates: start: 20170519, end: 20171228
  24. TRASTUZUMAB [Suspect]
     Active Substance: TRASTUZUMAB
     Dosage: 451.5 MG, EVERY 3 WEEKS
     Route: 042
     Dates: start: 20161111, end: 20170519
  25. TRASTUZUMAB [Suspect]
     Active Substance: TRASTUZUMAB
     Dosage: 451.5 MG, EVERY 3 WEEKS
     Route: 042
     Dates: start: 20161202, end: 20170203
  26. TRASTUZUMAB [Suspect]
     Active Substance: TRASTUZUMAB
     Dosage: 430.5 MG, EVERY 3 WEEKS
     Route: 042
     Dates: start: 20170224, end: 20170407
  27. TRASTUZUMAB [Suspect]
     Active Substance: TRASTUZUMAB
     Dosage: 420 MG, EVERY 3 WEEKS
     Route: 042
     Dates: start: 20170224, end: 20170407
  28. TRASTUZUMAB [Suspect]
     Active Substance: TRASTUZUMAB
     Dosage: 420 MG, EVERY 3 WEEKS
     Route: 042
     Dates: start: 20170224, end: 20170407
  29. TRASTUZUMAB [Suspect]
     Active Substance: TRASTUZUMAB
     Dosage: 420 MG, EVERY 3 WEEKS
     Route: 042
     Dates: start: 20160701, end: 20160727
  30. ADO-TRASTUZUMAB EMTANSINE [Suspect]
     Active Substance: ADO-TRASTUZUMAB EMTANSINE
     Indication: HER2 positive breast cancer
     Dosage: 280 MG, EVERY 3 WEEKS
     Route: 042
  31. ADO-TRASTUZUMAB EMTANSINE [Suspect]
     Active Substance: ADO-TRASTUZUMAB EMTANSINE
     Indication: Breast cancer metastatic
     Dosage: 280 MG, EVERY 3 WEEKS
     Route: 041
     Dates: start: 20180131
  32. ENHERTU [Suspect]
     Active Substance: FAM-TRASTUZUMAB DERUXTECAN-NXKI
     Indication: HER2 positive breast cancer
     Dosage: 451.5 MG, EVERY 3 WEEKS ()
     Route: 042
     Dates: start: 20180131
  33. ENHERTU [Suspect]
     Active Substance: FAM-TRASTUZUMAB DERUXTECAN-NXKI
     Dosage: 473 MG, ONCE EVERY 3 WK
     Route: 042
     Dates: start: 20170519, end: 20171228
  34. ENHERTU [Suspect]
     Active Substance: FAM-TRASTUZUMAB DERUXTECAN-NXKI
     Dosage: 452 MG, ONCE EVERY 3 WK
     Route: 042
     Dates: start: 20161021, end: 20161111
  35. ENHERTU [Suspect]
     Active Substance: FAM-TRASTUZUMAB DERUXTECAN-NXKI
     Dosage: 567 MG, QD
     Route: 042
     Dates: start: 20160609, end: 20160609
  36. ENHERTU [Suspect]
     Active Substance: FAM-TRASTUZUMAB DERUXTECAN-NXKI
     Dosage: 420 MG, ONCE EVERY 3 WK
     Route: 042
     Dates: start: 20160907, end: 20160926
  37. ENHERTU [Suspect]
     Active Substance: FAM-TRASTUZUMAB DERUXTECAN-NXKI
     Dosage: 473 MG, ONCE EVERY 3 WK
     Route: 042
     Dates: start: 20170428, end: 20170519
  38. ENHERTU [Suspect]
     Active Substance: FAM-TRASTUZUMAB DERUXTECAN-NXKI
     Dosage: 452 MG, ONCE EVERY 3 WK
     Route: 042
     Dates: start: 20161111, end: 20170519
  39. ENHERTU [Suspect]
     Active Substance: FAM-TRASTUZUMAB DERUXTECAN-NXKI
     Dosage: 420 MG, ONCE EVERY 3 WK
     Route: 042
     Dates: start: 20161202, end: 20170203
  40. ENHERTU [Suspect]
     Active Substance: FAM-TRASTUZUMAB DERUXTECAN-NXKI
     Dosage: 420 MG, ONCE EVERY 3 WK
     Route: 042
     Dates: start: 20170224, end: 20170407
  41. ENHERTU [Suspect]
     Active Substance: FAM-TRASTUZUMAB DERUXTECAN-NXKI
     Dosage: 567 MILLIGRAM, DAILY, LOADING DOSE
     Route: 042
     Dates: start: 20170612, end: 20171228
  42. ENHERTU [Suspect]
     Active Substance: FAM-TRASTUZUMAB DERUXTECAN-NXKI
     Dosage: 420 MG, ONCE EVERY 3 WK
     Route: 042
     Dates: start: 20160701, end: 20160727
  43. CALCIUM CARBONATE\CHOLECALCIFEROL [Concomitant]
     Active Substance: CALCIUM CARBONATE\CHOLECALCIFEROL
     Indication: Product used for unknown indication
     Dosage: UNK UNK, 2X/DAY
     Route: 048
     Dates: start: 20170621
  44. CASSIA SENNA FRUIT EXTRACT [Concomitant]
     Indication: Product used for unknown indication
     Dosage: 15 MG, 1X/DAY
     Route: 048
     Dates: start: 20160722
  45. CHLORPHENIRAMINE MALEATE [Concomitant]
     Active Substance: CHLORPHENIRAMINE MALEATE
     Indication: Product used for unknown indication
     Dosage: 10 MG, QD
     Route: 042
     Dates: start: 20160907, end: 20160907
  46. CHLORPHENIRAMINE MALEATE [Concomitant]
     Active Substance: CHLORPHENIRAMINE MALEATE
     Dosage: 10 MG, UNK
     Route: 042
     Dates: start: 20160928, end: 20170724
  47. CLARITHROMYCIN [Concomitant]
     Active Substance: CLARITHROMYCIN
     Indication: Product used for unknown indication
     Dosage: 500 MG, UNK
     Route: 048
     Dates: start: 20180214, end: 20180301
  48. CLARITHROMYCIN [Concomitant]
     Active Substance: CLARITHROMYCIN
     Dosage: 500 MILLIGRAM (START 14-FEB-2018);
     Route: 048
     Dates: end: 20180301
  49. CLARITHROMYCIN [Concomitant]
     Active Substance: CLARITHROMYCIN
     Dosage: 500 MG, UNK
     Route: 048
     Dates: start: 20180214, end: 20180301
  50. AMOXICILLIN\CLAVULANATE POTASSIUM [Concomitant]
     Active Substance: AMOXICILLIN\CLAVULANATE POTASSIUM
     Indication: Product used for unknown indication
     Dosage: 1.2 G, 2X/DAY
     Route: 042
     Dates: start: 20180214, end: 20180214
  51. AMOXICILLIN\CLAVULANATE POTASSIUM [Concomitant]
     Active Substance: AMOXICILLIN\CLAVULANATE POTASSIUM
     Dosage: 625 MG, 3X/DAY
     Route: 065
     Dates: start: 20180215, end: 20180301
  52. AMOXICILLIN\CLAVULANATE POTASSIUM [Concomitant]
     Active Substance: AMOXICILLIN\CLAVULANATE POTASSIUM
     Dosage: 625 MG, 3X/DAY
     Route: 065
     Dates: start: 20180215, end: 20180301
  53. AMOXICILLIN\CLAVULANATE POTASSIUM [Concomitant]
     Active Substance: AMOXICILLIN\CLAVULANATE POTASSIUM
     Dosage: 1.2 G, 2X/DAY
     Route: 042
     Dates: start: 20180214, end: 20180214
  54. AMOXICILLIN\CLAVULANATE POTASSIUM [Concomitant]
     Active Substance: AMOXICILLIN\CLAVULANATE POTASSIUM
     Dosage: 625 MILLIGRAM, TID (625 MILLIGRAM 3/DAY) (START 15-FEB-2018)
     Route: 065
     Dates: end: 20180301
  55. AMOXICILLIN\CLAVULANATE POTASSIUM [Concomitant]
     Active Substance: AMOXICILLIN\CLAVULANATE POTASSIUM
     Dosage: 1.2 GRAM, BID (START 14-FEB-2018)
     Route: 042
     Dates: end: 20180214
  56. COTRIMOXAZOLE [Concomitant]
     Active Substance: SULFAMETHOXAZOLE\TRIMETHOPRIM
     Indication: Product used for unknown indication
     Dosage: 480 MG, 1X/DAY
     Route: 048
     Dates: start: 20180131
  57. COTRIMOXAZOLE [Concomitant]
     Active Substance: SULFAMETHOXAZOLE\TRIMETHOPRIM
     Dosage: 480 MG, 1X/DAY
     Route: 048
     Dates: start: 20180131, end: 20180131
  58. CYCLIZINE [Concomitant]
     Active Substance: CYCLIZINE
     Indication: Product used for unknown indication
     Dosage: 50 MG, 3X/DAY
     Route: 048
     Dates: start: 20170902
  59. CYCLIZINE [Concomitant]
     Active Substance: CYCLIZINE
     Dosage: 50 MG, 3X/DAY
     Route: 048
     Dates: start: 20170902
  60. DEXAMETHASONE [Concomitant]
     Active Substance: DEXAMETHASONE
     Indication: Product used for unknown indication
     Dosage: 4 MG, 1X/DAY
     Route: 048
     Dates: start: 20180110
  61. DEXAMETHASONE [Concomitant]
     Active Substance: DEXAMETHASONE
     Dosage: 2 MG, 1X/DAY
     Route: 048
     Dates: start: 20200111
  62. DEXAMETHASONE [Concomitant]
     Active Substance: DEXAMETHASONE
     Dosage: 8 MG, UNK
     Route: 048
     Dates: start: 20160610, end: 20160611
  63. DEXAMETHASONE [Concomitant]
     Active Substance: DEXAMETHASONE
     Dosage: 2 MG, 1X/DAY
     Route: 048
     Dates: start: 20170902, end: 20180110
  64. DEXAMETHASONE [Concomitant]
     Active Substance: DEXAMETHASONE
     Dosage: 4 MG, 2X/DAY
     Route: 048
     Dates: start: 20170616, end: 20170902
  65. DEXAMETHASONE [Concomitant]
     Active Substance: DEXAMETHASONE
     Dosage: 4 MG, 2X/DAY
     Route: 048
     Dates: start: 20160722, end: 20160723
  66. DEXAMETHASONE [Concomitant]
     Active Substance: DEXAMETHASONE
     Dosage: 1 DF, 1X/DAY
     Route: 048
     Dates: start: 20160805, end: 201609
  67. DEXAMETHASONE [Concomitant]
     Active Substance: DEXAMETHASONE
     Dosage: 4 MILLIGRAM, DAILY
     Route: 048
     Dates: start: 20180110
  68. DEXAMETHASONE [Concomitant]
     Active Substance: DEXAMETHASONE
     Dosage: 8 MILLIGRAM, DAILY
     Route: 042
     Dates: start: 20160803, end: 20160805
  69. DEXAMETHASONE [Concomitant]
     Active Substance: DEXAMETHASONE
     Dosage: 8 MG, UNK
     Route: 048
     Dates: start: 20160616, end: 20160616
  70. DEXAMETHASONE [Concomitant]
     Active Substance: DEXAMETHASONE
     Indication: Product used for unknown indication
     Dosage: 8 MG, UNK
     Route: 042
     Dates: start: 20170616, end: 20170616
  71. DEXAMETHASONE [Concomitant]
     Active Substance: DEXAMETHASONE
     Dosage: 8 MG, 1X/DAY
     Route: 042
     Dates: start: 20160803, end: 20160805
  72. ENOXAPARIN [Concomitant]
     Active Substance: ENOXAPARIN
     Indication: Product used for unknown indication
     Dosage: 40 MG, 1X/DAY
     Route: 058
     Dates: start: 20160817, end: 20160914
  73. ENOXAPARIN [Concomitant]
     Active Substance: ENOXAPARIN
     Dosage: 40 MG, 1X/DAY
     Route: 058
     Dates: start: 20180105, end: 20180117
  74. ENOXAPARIN [Concomitant]
     Active Substance: ENOXAPARIN
     Dosage: 120 MG, UNK
     Route: 058
     Dates: start: 20180212, end: 20180212
  75. ENOXAPARIN [Concomitant]
     Active Substance: ENOXAPARIN
     Dosage: 40 MG, 1X/DAY
     Route: 058
     Dates: start: 20180214, end: 20180214
  76. ENOXAPARIN [Concomitant]
     Active Substance: ENOXAPARIN
     Dosage: 40 MG, 1X/DAY
     Route: 058
     Dates: start: 20170616, end: 20170623
  77. ENOXAPARIN [Concomitant]
     Active Substance: ENOXAPARIN
     Dosage: 1200 MILLIGRAM, DAILY
     Route: 058
     Dates: start: 20180212, end: 20180212
  78. ENOXAPARIN [Concomitant]
     Active Substance: ENOXAPARIN
     Dosage: 40 MG, 1X/DAY
     Route: 058
     Dates: start: 20180214, end: 20180214
  79. GENTAMICIN [Concomitant]
     Active Substance: GENTAMICIN
     Indication: Product used for unknown indication
     Dosage: 400 MG, UNK
     Route: 042
     Dates: start: 20180212, end: 20180212
  80. GENTAMICIN [Concomitant]
     Active Substance: GENTAMICIN
     Dosage: 375 MG, 1X/DAY
     Route: 042
     Dates: start: 20161009, end: 20161009
  81. GENTAMICIN [Concomitant]
     Active Substance: GENTAMICIN
     Dosage: 400 MG, UNK
     Route: 042
     Dates: start: 20180212, end: 20180212
  82. HYDROCORTISONE [Concomitant]
     Active Substance: HYDROCORTISONE
     Indication: Product used for unknown indication
     Dosage: 100 MG, QD
     Route: 042
     Dates: start: 20160907, end: 20160907
  83. HYDROCORTISONE [Concomitant]
     Active Substance: HYDROCORTISONE
     Dosage: 100 MG, UNK
     Route: 042
     Dates: start: 20160928
  84. HYDROCORTISONE [Concomitant]
     Active Substance: HYDROCORTISONE
     Dosage: 500 MG PER 0.5 DAY
     Route: 058
     Dates: start: 20170617
  85. HYDROCORTISONE [Concomitant]
     Active Substance: HYDROCORTISONE
     Dosage: 100 MG, QD
     Route: 042
     Dates: start: 20160907, end: 20160907
  86. HYDROCORTISONE [Concomitant]
     Active Substance: HYDROCORTISONE
     Dosage: 1 G
     Route: 065
     Dates: start: 20170616, end: 20170616
  87. LANSOPRAZOLE [Concomitant]
     Active Substance: LANSOPRAZOLE
     Indication: Product used for unknown indication
     Dosage: 30 MG, UNK
     Route: 048
     Dates: start: 20160809
  88. LANSOPRAZOLE [Concomitant]
     Active Substance: LANSOPRAZOLE
     Dosage: 30 MG, 1X/DAY
     Route: 048
     Dates: start: 20160722, end: 20160724
  89. LANSOPRAZOLE [Concomitant]
     Active Substance: LANSOPRAZOLE
     Dosage: 30 MG, 1X/DAY
     Route: 048
     Dates: start: 20161010
  90. LEVETIRACETAM [Concomitant]
     Active Substance: LEVETIRACETAM
     Indication: Product used for unknown indication
     Dosage: 1 G, UNK
     Route: 042
     Dates: start: 20170616, end: 20170616
  91. LEVETIRACETAM [Concomitant]
     Active Substance: LEVETIRACETAM
     Dosage: 1 GRAM, DAILY
     Route: 048
     Dates: start: 20170617
  92. LEVETIRACETAM [Concomitant]
     Active Substance: LEVETIRACETAM
     Dosage: 500 MILLIGRAM
     Route: 058
     Dates: start: 20170617
  93. LEVETIRACETAM [Concomitant]
     Active Substance: LEVETIRACETAM
     Indication: Product used for unknown indication
     Dosage: 500 MG, 2X/DAY
     Route: 048
     Dates: start: 20170617
  94. METOCLOPRAMIDE [Concomitant]
     Active Substance: METOCLOPRAMIDE
     Indication: Product used for unknown indication
     Dosage: 10 MG, UNK
     Route: 048
     Dates: start: 20180131
  95. METOCLOPRAMIDE [Concomitant]
     Active Substance: METOCLOPRAMIDE
     Dosage: 10 MG, UNK
     Route: 048
     Dates: start: 20160610, end: 20161111
  96. METOCLOPRAMIDE [Concomitant]
     Active Substance: METOCLOPRAMIDE
     Dosage: 10 MG, UNK
     Route: 042
     Dates: start: 20180106, end: 20180106
  97. SODIUM CHLORIDE [Concomitant]
     Active Substance: SODIUM CHLORIDE
     Indication: Product used for unknown indication
     Dosage: UNK
     Route: 042
     Dates: start: 20180105, end: 20180105
  98. SODIUM CHLORIDE [Concomitant]
     Active Substance: SODIUM CHLORIDE
     Dosage: UNK
     Route: 042
     Dates: start: 20180212, end: 20180214
  99. SODIUM CHLORIDE [Concomitant]
     Active Substance: SODIUM CHLORIDE
     Dosage: UNK
     Route: 042
     Dates: start: 20170616, end: 20170616
  100. ONDANSETRON [Concomitant]
     Active Substance: ONDANSETRON
     Indication: Vomiting
     Dosage: 8 MG, 3X/DAY
     Route: 048
     Dates: start: 20170616, end: 20170626
  101. ONDANSETRON [Concomitant]
     Active Substance: ONDANSETRON
     Dosage: 8 MG, 3X/DAY
     Route: 048
     Dates: start: 20170902
  102. MORPHINE SULFATE [Concomitant]
     Active Substance: MORPHINE SULFATE
     Indication: Product used for unknown indication
     Dosage: 2.5 MG, UNK
     Route: 048
     Dates: start: 20160828
  103. OSELTAMIVIR [Concomitant]
     Active Substance: OSELTAMIVIR
     Indication: Product used for unknown indication
     Dosage: 15 MG, 2X/DAY
     Route: 048
     Dates: start: 20180213, end: 20180217
  104. ACETAMINOPHEN [Concomitant]
     Active Substance: ACETAMINOPHEN
     Indication: Product used for unknown indication
     Dosage: 1 G, UNK
     Route: 048
     Dates: start: 20170903
  105. ACETAMINOPHEN [Concomitant]
     Active Substance: ACETAMINOPHEN
     Dosage: UNK
     Route: 048
     Dates: start: 20160803
  106. ACETAMINOPHEN [Concomitant]
     Active Substance: ACETAMINOPHEN
     Dosage: 1 MG, UNK
     Route: 048
     Dates: start: 20160723, end: 20160724
  107. ACETAMINOPHEN [Concomitant]
     Active Substance: ACETAMINOPHEN
     Dosage: 1 G, 1X/DAY
     Route: 048
     Dates: start: 20160722, end: 20160724
  108. ACETAMINOPHEN [Concomitant]
     Active Substance: ACETAMINOPHEN
     Dosage: 5 UNK
     Route: 048
     Dates: start: 20160803
  109. RAMIPRIL [Concomitant]
     Active Substance: RAMIPRIL
     Indication: Product used for unknown indication
     Dosage: 2.3 MG, 1X/DAY
     Route: 048
     Dates: start: 20160722
  110. SODIUM CHLORIDE [Concomitant]
     Active Substance: SODIUM CHLORIDE
     Indication: Product used for unknown indication
     Dosage: UNK
     Route: 042
     Dates: start: 20180212, end: 20180214
  111. SODIUM CHLORIDE [Concomitant]
     Active Substance: SODIUM CHLORIDE
     Dosage: UNK
     Route: 042
     Dates: start: 20180105, end: 20180105
  112. SODIUM CHLORIDE [Concomitant]
     Active Substance: SODIUM CHLORIDE
     Dosage: UNK
     Route: 065
     Dates: start: 20170616, end: 20170616
  113. SODIUM CHLORIDE [Concomitant]
     Active Substance: SODIUM CHLORIDE
     Dosage: 5 MILLILITER, MONTHLY
     Route: 055
     Dates: start: 20170616, end: 20170623
  114. SODIUM CHLORIDE [Concomitant]
     Active Substance: SODIUM CHLORIDE
     Dosage: UNK
     Route: 042
     Dates: start: 20170616, end: 20170616
  115. SODIUM CHLORIDE [Concomitant]
     Active Substance: SODIUM CHLORIDE
     Dosage: UNK
     Route: 042
     Dates: start: 20180212, end: 20180214
  116. PIPERACILLIN SODIUM\TAZOBACTAM SODIUM [Concomitant]
     Active Substance: PIPERACILLIN SODIUM\TAZOBACTAM SODIUM
     Indication: Product used for unknown indication
     Dosage: 4.5 MG, 3X/DAY
     Route: 048
     Dates: start: 20180212, end: 20180214
  117. PIPERACILLIN SODIUM\TAZOBACTAM SODIUM [Concomitant]
     Active Substance: PIPERACILLIN SODIUM\TAZOBACTAM SODIUM
     Dosage: 4.5 GRAM, UNK
     Route: 048
     Dates: start: 20180212, end: 20180214
  118. PIPERACILLIN SODIUM\TAZOBACTAM SODIUM [Concomitant]
     Active Substance: PIPERACILLIN SODIUM\TAZOBACTAM SODIUM
     Dosage: 13.5 GRAM, QD
     Route: 048
     Dates: start: 20180212, end: 20180214
  119. SENNA [Concomitant]
     Active Substance: SENNA LEAF\SENNOSIDES\SENNOSIDES A AND B
     Indication: Product used for unknown indication
  120. TRIMETHOPRIM [Concomitant]
     Active Substance: TRIMETHOPRIM
     Indication: Product used for unknown indication
     Dosage: 50 MG, TID
     Route: 048
     Dates: start: 20170902
  121. MEROPENEM [Concomitant]
     Active Substance: MEROPENEM
     Indication: Product used for unknown indication
     Dosage: 1 GRAM
     Route: 042
     Dates: start: 20160809, end: 20160817
  122. LEVOFLOXACIN [Concomitant]
     Active Substance: LEVOFLOXACIN
     Indication: Product used for unknown indication
     Dosage: UNK
     Route: 065
     Dates: start: 20161009, end: 20161017
  123. LEVOMEPROMAZINE [Concomitant]
     Active Substance: LEVOMEPROMAZINE
     Indication: Product used for unknown indication
     Dosage: UNK
     Route: 065
     Dates: start: 20170908, end: 20170908
  124. LEVOMEPROMAZINE [Concomitant]
     Active Substance: LEVOMEPROMAZINE
     Dosage: 6.25 MILLIGRAM
     Route: 058
     Dates: start: 20170617, end: 20170617
  125. LEVOMEPROMAZINE [Concomitant]
     Active Substance: LEVOMEPROMAZINE
     Dosage: UNK
     Route: 065
     Dates: start: 20170908, end: 20170925
  126. RANITIDINE [Concomitant]
     Active Substance: RANITIDINE
     Indication: Product used for unknown indication
     Dosage: 50 MILLIGRAM
     Route: 048
     Dates: start: 20170617, end: 20170618
  127. AMOXICILLIN [Concomitant]
     Active Substance: AMOXICILLIN
     Indication: Product used for unknown indication
     Dosage: UNK, ONCE A DAY
     Route: 048
     Dates: start: 201712, end: 201712
  128. CIPROFLOXACIN [Concomitant]
     Active Substance: CIPROFLOXACIN
     Indication: Product used for unknown indication
     Dosage: UNK
     Route: 065
     Dates: start: 20161009, end: 20161009
  129. CIPROFLOXACIN [Concomitant]
     Active Substance: CIPROFLOXACIN
     Dosage: 15 MILLIGRAM, DAILY
     Route: 048
  130. CIPROFLOXACIN [Concomitant]
     Active Substance: CIPROFLOXACIN
     Dosage: UNK (START 09-OCT-2016);
     Route: 065
     Dates: end: 20161009
  131. CIPROFLOXACIN [Concomitant]
     Active Substance: CIPROFLOXACIN
     Dosage: UNK UNK, QD;
     Route: 065
     Dates: start: 20161009, end: 20161009
  132. ENOXAPARIN SODIUM [Concomitant]
     Active Substance: ENOXAPARIN SODIUM
     Indication: Product used for unknown indication
     Dosage: UNK
     Route: 065
     Dates: start: 20160723, end: 20160723
  133. ENOXAPARIN SODIUM [Concomitant]
     Active Substance: ENOXAPARIN SODIUM
     Dosage: UNK (START 25-AUG-2016)
     Route: 065
     Dates: start: 20160825, end: 20160914
  134. CODEINE [Concomitant]
     Active Substance: CODEINE
     Indication: Product used for unknown indication
     Dosage: 10 MILLILITER
     Route: 048
     Dates: start: 20170619
  135. CHLOROFORM\CODEINE PHOSPHATE\DRIMIA MARITIMA BULB [Concomitant]
     Active Substance: CHLOROFORM\CODEINE PHOSPHATE\DRIMIA MARITIMA BULB
     Indication: Product used for unknown indication
     Dosage: 10 MILLILITER
     Route: 048
     Dates: start: 20170619
  136. BENZYDAMINE [Concomitant]
     Active Substance: BENZYDAMINE
     Indication: Product used for unknown indication
     Dosage: UNK
     Route: 065
     Dates: start: 20160722, end: 20160723
  137. DOCUSATE [Concomitant]
     Active Substance: DOCUSATE
     Indication: Product used for unknown indication
     Dosage: UNK
     Route: 065
     Dates: start: 20160722, end: 20160724
  138. FILGRASTIM [Concomitant]
     Active Substance: FILGRASTIM
     Indication: Product used for unknown indication
     Dosage: 300 MICROGRAM
     Route: 065
     Dates: start: 20160731, end: 20161112
  139. ALBUTEROL [Concomitant]
     Active Substance: ALBUTEROL
     Indication: Product used for unknown indication
     Dosage: 3 MILLIGRAM
     Route: 065
     Dates: start: 20160822, end: 20160908
  140. ALBUTEROL [Concomitant]
     Active Substance: ALBUTEROL
     Dosage: 3 MILLIGRAM
     Route: 055
     Dates: start: 20170616, end: 20170618
  141. ALBUTEROL [Concomitant]
     Active Substance: ALBUTEROL
     Dosage: UNK
     Route: 055
     Dates: start: 20160822, end: 20160908
  142. SULFAMETHOXAZOLE\TRIMETHOPRIM [Concomitant]
     Active Substance: SULFAMETHOXAZOLE\TRIMETHOPRIM
     Indication: Product used for unknown indication
     Dosage: 2112 MILLIGRAM
     Route: 042
     Dates: start: 20160811, end: 20160816
  143. VANCOMYCIN [Concomitant]
     Active Substance: VANCOMYCIN
     Indication: Product used for unknown indication
     Dosage: UNK
     Route: 065
     Dates: start: 20161009
  144. ZOPICLONE [Concomitant]
     Active Substance: ZOPICLONE
     Indication: Product used for unknown indication
     Dosage: 3.75 MILLIGRAM
     Route: 048
     Dates: start: 20170618, end: 20170619
  145. PIPERACILLIN SODIUM [Concomitant]
     Active Substance: PIPERACILLIN SODIUM
     Indication: Product used for unknown indication
     Dosage: 13.5 MILLIGRAM, TID
     Route: 065
     Dates: start: 20180212, end: 20180214
  146. SENNA LEAF [Concomitant]
     Active Substance: SENNA LEAF
     Indication: Product used for unknown indication

REACTIONS (19)
  - Disease progression [Fatal]
  - Ejection fraction decreased [Fatal]
  - Condition aggravated [Fatal]
  - Seizure [Fatal]
  - Pneumonia [Fatal]
  - Lower respiratory tract infection [Fatal]
  - Chest pain [Fatal]
  - Pain in jaw [Fatal]
  - Diarrhoea [Fatal]
  - Excessive eye blinking [Fatal]
  - Dyspnoea [Fatal]
  - Off label use [Fatal]
  - Hyponatraemia [Fatal]
  - Nausea [Fatal]
  - Back pain [Fatal]
  - Vomiting [Fatal]
  - Vomiting [Fatal]
  - Nausea [Fatal]
  - Vomiting [Fatal]

NARRATIVE: CASE EVENT DATE: 20160722
